FAERS Safety Report 18516462 (Version 2)
Quarter: 2021Q1

REPORT INFORMATION
  Report Type: Other
  Country: FR (occurrence: FR)
  Receive Date: 20201118
  Receipt Date: 20210126
  Transmission Date: 20210419
  Serious: No
  Sender: FDA-Public Use
  Company Number: FR-GW PHARMA-202011FRGW03921

PATIENT

DRUGS (2)
  1. EPIDYOLEX [Suspect]
     Active Substance: CANNABIDIOL
     Indication: PARTIAL SEIZURES
     Dosage: 600 MILLIGRAM, QD
     Route: 048
     Dates: start: 20200605, end: 20201211
  2. EPIDYOLEX [Suspect]
     Active Substance: CANNABIDIOL
     Dosage: 900 MILLIGRAM, QD
     Route: 048
     Dates: start: 20201212

REACTIONS (1)
  - Diarrhoea [Not Recovered/Not Resolved]

NARRATIVE: CASE EVENT DATE: 20200620
